FAERS Safety Report 13371566 (Version 1)
Quarter: 2017Q1

REPORT INFORMATION
  Report Type: Spontaneous
  Country: HU (occurrence: HU)
  Receive Date: 20170324
  Receipt Date: 20170324
  Transmission Date: 20170429
  Serious: Yes (Death, Life-Threatening, Hospitalization, Other)
  Sender: FDA-Public Use
  Company Number: HU-BRISTOL-MYERS SQUIBB COMPANY-BMS-2017-024286

PATIENT
  Age: 68 Year
  Sex: Female

DRUGS (1)
  1. OPDIVO [Suspect]
     Active Substance: NIVOLUMAB
     Indication: NON-SMALL CELL LUNG CANCER
     Dosage: 3 MG/KG, Q2WK
     Route: 042
     Dates: start: 20161228, end: 20170227

REACTIONS (3)
  - Death [Fatal]
  - Pneumonitis [Unknown]
  - Tachyarrhythmia [Unknown]

NARRATIVE: CASE EVENT DATE: 20170223
